FAERS Safety Report 12640477 (Version 4)
Quarter: 2017Q3

REPORT INFORMATION
  Report Type: Spontaneous
  Country: US (occurrence: US)
  Receive Date: 20160810
  Receipt Date: 20170802
  Transmission Date: 20171127
  Serious: Yes (Other)
  Sender: FDA-Public Use
  Company Number: US-PFIZER INC-2016376457

PATIENT
  Age: 66 Year
  Sex: Female

DRUGS (8)
  1. XELJANZ [Suspect]
     Active Substance: TOFACITINIB CITRATE
     Dosage: UNK, 2X/DAY
     Dates: start: 2014
  2. XELJANZ [Suspect]
     Active Substance: TOFACITINIB CITRATE
     Dosage: UNK
     Dates: start: 2015
  3. XELJANZ [Suspect]
     Active Substance: TOFACITINIB CITRATE
     Indication: RHEUMATOID ARTHRITIS
     Dosage: 5 MG, UNK
  4. HYDROCODONE/ACETAMINOPHEN [Concomitant]
     Active Substance: ACETAMINOPHEN\HYDROCODONE
     Indication: PAIN
     Dosage: UNK, 3X/DAY (2 EVERY 8 HOUR)
  5. FAMOTIDINE. [Suspect]
     Active Substance: FAMOTIDINE
     Indication: ANTACID THERAPY
     Dosage: 40 MG, UNK
     Dates: start: 2007
  6. BUPROPION. [Suspect]
     Active Substance: BUPROPION
     Indication: ANTIDEPRESSANT THERAPY
     Dosage: UNK, 2X/DAY
     Dates: start: 2007
  7. XELJANZ [Suspect]
     Active Substance: TOFACITINIB CITRATE
     Dosage: 5 MG, 1X/DAY
  8. FOLIC ACID. [Suspect]
     Active Substance: FOLIC ACID
     Indication: HYPOVITAMINOSIS
     Dosage: 40 MG, UNK
     Dates: start: 2008

REACTIONS (5)
  - Cataract [Not Recovered/Not Resolved]
  - Pain [Recovered/Resolved]
  - Dizziness [Unknown]
  - Fall [Unknown]
  - Product use issue [Unknown]

NARRATIVE: CASE EVENT DATE: 2009
